FAERS Safety Report 5047101-5 (Version None)
Quarter: 2006Q3

REPORT INFORMATION
  Report Type: 
  Country: None (occurrence: None)
  Receive Date: 20060703
  Receipt Date: 20060626
  Transmission Date: 20061208
  Serious: Yes (Other)
  Sender: FDA-Public Use
  Company Number: 2006045206

PATIENT
  Age: 4 Year
  Sex: Female
  Weight: 16.6924 kg

DRUGS (6)
  1. ZYRTEC [Suspect]
     Indication: HYPERSENSITIVITY
     Dosage: 10 MG (10 MG, 1 IN 1 D),
  2. PULMICORT [Concomitant]
  3. SINGULAIR [Concomitant]
  4. ANTI-ASTHMATICS (ANTI-ASTHMATICS) [Concomitant]
  5. ANTIBIOTICS (ANTIBIOTICS) [Concomitant]
  6. ALBUTEROL [Concomitant]

REACTIONS (12)
  - CERUMEN IMPACTION [None]
  - CONJUNCTIVAL HYPERAEMIA [None]
  - COUGH [None]
  - DRUG INEFFECTIVE [None]
  - EAR OPERATION [None]
  - EYE ALLERGY [None]
  - FATIGUE [None]
  - FEELING ABNORMAL [None]
  - OVERDOSE [None]
  - POSTNASAL DRIP [None]
  - PRURITUS [None]
  - RHINITIS ALLERGIC [None]
